FAERS Safety Report 17374055 (Version 1)
Quarter: 2020Q1

REPORT INFORMATION
  Report Type: Spontaneous
  Country: US (occurrence: US)
  Receive Date: 20200205
  Receipt Date: 20200205
  Transmission Date: 20200409
  Serious: No
  Sender: FDA-Public Use
  Company Number: NVSC2019US045733

PATIENT
  Sex: Male

DRUGS (1)
  1. JADENU [Suspect]
     Active Substance: DEFERASIROX
     Indication: WHITE BLOOD CELL COUNT DECREASED
     Dosage: 360 MG, QD (3 TABLETS BY MOUTH DAILY)
     Route: 060
     Dates: start: 20190523, end: 20190906

REACTIONS (2)
  - Product use in unapproved indication [Unknown]
  - White blood cell count decreased [Unknown]
